FAERS Safety Report 13713528 (Version 6)
Quarter: 2020Q4

REPORT INFORMATION
  Report Type: Spontaneous
  Country: US (occurrence: US)
  Receive Date: 20170704
  Receipt Date: 20201207
  Transmission Date: 20210113
  Serious: Yes (Other)
  Sender: FDA-Public Use
  Company Number: PHEH2017US020421

PATIENT
  Sex: Female
  Weight: 72.56 kg

DRUGS (2)
  1. ZOFRAN [Suspect]
     Active Substance: ONDANSETRON HYDROCHLORIDE
     Indication: PRODUCT USED FOR UNKNOWN INDICATION
     Route: 048
  2. ONDANSETRON [Suspect]
     Active Substance: ONDANSETRON
     Indication: MORNING SICKNESS
     Dosage: 04 MG, PRN
     Route: 048
     Dates: start: 20120119, end: 20120712

REACTIONS (14)
  - Sepsis [Unknown]
  - Product use issue [Unknown]
  - Hypoxia [Unknown]
  - Anxiety disorder [Unknown]
  - Constipation [Unknown]
  - Thyroid dysfunction in pregnancy [Unknown]
  - Emotional distress [Unknown]
  - Maternal exposure during pregnancy [Unknown]
  - Haemorrhage [Unknown]
  - Ischaemia [Unknown]
  - Embolism [Unknown]
  - Anaemia of pregnancy [Unknown]
  - Urinary retention [Unknown]
  - Injury [Unknown]
